FAERS Safety Report 9274329 (Version 1)
Quarter: 2013Q2

REPORT INFORMATION
  Report Type: Spontaneous
  Country: US (occurrence: US)
  Receive Date: 20130506
  Receipt Date: 20130506
  Transmission Date: 20140414
  Serious: Yes (Other)
  Sender: FDA-Public Use
  Company Number: CHPA2013US007540

PATIENT
  Age: 80 Year
  Sex: Female

DRUGS (1)
  1. OTRIVIN [Suspect]
     Indication: PROPHYLAXIS
     Dosage: 1-2 DF, QD
     Route: 045

REACTIONS (6)
  - Drug dependence [Not Recovered/Not Resolved]
  - Nasal congestion [Not Recovered/Not Resolved]
  - Therapeutic response unexpected [Unknown]
  - Off label use [Unknown]
  - Incorrect drug administration duration [Unknown]
  - Expired drug administered [Unknown]
